FAERS Safety Report 12271743 (Version 1)
Quarter: 2016Q2

REPORT INFORMATION
  Report Type: Spontaneous
  Country: US (occurrence: None)
  Receive Date: 20160414
  Receipt Date: 20160414
  Transmission Date: 20160815
  Serious: Yes (Hospitalization)
  Sender: FDA-Public Use
  Company Number: None

PATIENT
  Age: 30 Year
  Sex: Female
  Weight: 80.9 kg

DRUGS (1)
  1. AMOXICILLIN. [Suspect]
     Active Substance: AMOXICILLIN
     Indication: INFECTION
     Route: 048
     Dates: start: 20150714, end: 20150813

REACTIONS (7)
  - Erythema [None]
  - Anaphylactic reaction [None]
  - Tachycardia [None]
  - Nausea [None]
  - Flushing [None]
  - Hypotension [None]
  - Throat tightness [None]

NARRATIVE: CASE EVENT DATE: 20150801
